FAERS Safety Report 25612706 (Version 2)
Quarter: 2025Q3

REPORT INFORMATION
  Report Type: Report from Study
  Country: KR (occurrence: KR)
  Receive Date: 20250728
  Receipt Date: 20250926
  Transmission Date: 20251020
  Serious: Yes (Death)
  Sender: ROCHE
  Company Number: KR-ROCHE-10000345042

PATIENT
  Age: 64 Year
  Sex: Male
  Weight: 61.7 kg

DRUGS (6)
  1. ATEZOLIZUMAB [Suspect]
     Active Substance: ATEZOLIZUMAB
     Indication: Pancreatic carcinoma
     Route: 042
     Dates: start: 20240930, end: 20240930
  2. ELIQUIS [Concomitant]
     Active Substance: APIXABAN
     Indication: Pulmonary embolism
     Dates: start: 20240131
  3. Cerazine [Concomitant]
     Indication: Rash
     Dates: start: 20210930
  4. CREON [Concomitant]
     Active Substance: PANCRELIPASE AMYLASE\PANCRELIPASE LIPASE\PANCRELIPASE PROTEASE
     Dates: start: 20220310
  5. LYRICA [Concomitant]
     Active Substance: PREGABALIN
     Indication: Paraesthesia
     Dates: start: 20221017
  6. ULTRACET [Concomitant]
     Active Substance: ACETAMINOPHEN\TRAMADOL HYDROCHLORIDE
     Dates: start: 20250624, end: 20250720

REACTIONS (1)
  - Gastric varices haemorrhage [Fatal]

NARRATIVE: CASE EVENT DATE: 20250719
